FAERS Safety Report 9644524 (Version 1)
Quarter: 2013Q4

REPORT INFORMATION
  Report Type: Spontaneous
  Country: US (occurrence: US)
  Receive Date: 20131025
  Receipt Date: 20131025
  Transmission Date: 20140711
  Serious: No
  Sender: FDA-Public Use
  Company Number: US-009507513-1310USA011497

PATIENT
  Sex: Female

DRUGS (2)
  1. NUVARING [Suspect]
     Dosage: 0.120/.015 MG
     Route: 067
     Dates: start: 201306, end: 2013
  2. NUVARING [Suspect]
     Dosage: 0.120/.015 MG, 1 CARTON OF 5 SACHETS
     Route: 067
     Dates: start: 2013

REACTIONS (2)
  - Product quality issue [Unknown]
  - No adverse event [Unknown]
